FAERS Safety Report 5330659-6 (Version None)
Quarter: 2007Q2

REPORT INFORMATION
  Report Type: 
  Country: None (occurrence: None)
  Receive Date: 20070522
  Receipt Date: 20070510
  Transmission Date: 20071010
  Serious: Yes (Hospitalization)
  Sender: FDA-Public Use
  Company Number: CAWYE571902MAY07

PATIENT
  Age: 58 Year
  Sex: Male

DRUGS (6)
  1. EFFEXOR XR [Suspect]
     Indication: DEPRESSION
     Route: 048
     Dates: start: 20060101, end: 20070401
  2. EFFEXOR XR [Suspect]
     Route: 048
     Dates: start: 20070401
  3. DOFETILIDE [Concomitant]
  4. RANITIDINE [Concomitant]
     Dosage: UNKNOWN
     Route: 048
  5. COUMADIN [Suspect]
     Indication: ATRIAL FIBRILLATION
     Dosage: UNKNOWN
     Route: 048
     Dates: end: 20070401
  6. DILTIAZEM [Concomitant]

REACTIONS (2)
  - GASTROINTESTINAL HAEMORRHAGE [None]
  - INTERNATIONAL NORMALISED RATIO INCREASED [None]
